FAERS Safety Report 13726944 (Version 1)
Quarter: 2017Q3

REPORT INFORMATION
  Report Type: Report from Study
  Country: US (occurrence: US)
  Receive Date: 20170707
  Receipt Date: 20170707
  Transmission Date: 20171127
  Serious: No
  Sender: FDA-Public Use
  Company Number: US-AMGEN-USASL2017100769

PATIENT
  Age: 31 Year
  Sex: Female

DRUGS (1)
  1. ENBREL [Suspect]
     Active Substance: ETANERCEPT
     Indication: PSORIASIS
     Dosage: 50 MG, 2 TIMES/WK
     Route: 065
     Dates: start: 20170629

REACTIONS (4)
  - Injection site pain [Not Recovered/Not Resolved]
  - Injection site vesicles [Unknown]
  - Injection site macule [Unknown]
  - Injection site erythema [Unknown]

NARRATIVE: CASE EVENT DATE: 20170629
